FAERS Safety Report 13590496 (Version 1)
Quarter: 2017Q2

REPORT INFORMATION
  Report Type: Spontaneous
  Country: US (occurrence: US)
  Receive Date: 20170529
  Receipt Date: 20170529
  Transmission Date: 20170830
  Serious: Yes (Disabling)
  Sender: FDA-Public Use
  Company Number: None

PATIENT
  Age: 50 Year
  Sex: Female
  Weight: 103.5 kg

DRUGS (3)
  1. MULTIVITAMIN [Concomitant]
     Active Substance: VITAMINS
  2. B2 [Concomitant]
  3. LO LOESTRIN FE [Suspect]
     Active Substance: ETHINYL ESTRADIOL\NORETHINDRONE ACETATE
     Indication: MENOPAUSAL SYMPTOMS
     Dosage: ?          OTHER STRENGTH:1MG/10MCG;QUANTITY:1 TABLET(S);?
     Route: 048
     Dates: start: 20170401, end: 20170425

REACTIONS (3)
  - Angular cheilitis [None]
  - Mouth haemorrhage [None]
  - Dermatitis [None]

NARRATIVE: CASE EVENT DATE: 20170401
